FAERS Safety Report 23847360 (Version 1)
Quarter: 2024Q2

REPORT INFORMATION
  Report Type: Spontaneous
  Country: US (occurrence: US)
  Receive Date: 20240513
  Receipt Date: 20240513
  Transmission Date: 20240716
  Serious: Yes (Death, Other)
  Sender: FDA-Public Use
  Company Number: US-GILEAD-2024-0672406

PATIENT
  Age: 54 Year
  Sex: Male

DRUGS (2)
  1. LENACAPAVIR [Suspect]
     Active Substance: LENACAPAVIR
     Indication: HIV infection
     Dosage: 927MG SUBCUTANEOUS EVERY 6 MONTHS
     Route: 058
     Dates: start: 202312
  2. LENACAPAVIR [Suspect]
     Active Substance: LENACAPAVIR
     Indication: HIV infection
     Dosage: 600MG BY MOUTH 1 TIME A DAY ON DAY 1 AND DAY 2
     Route: 048
     Dates: start: 202312

REACTIONS (1)
  - Death [Fatal]
